FAERS Safety Report 9204049 (Version 1)
Quarter: 2013Q2

REPORT INFORMATION
  Report Type: Spontaneous
  Country: DE (occurrence: DE)
  Receive Date: 20130402
  Receipt Date: 20130402
  Transmission Date: 20140414
  Serious: Yes (Hospitalization)
  Sender: FDA-Public Use
  Company Number: DE-PFIZER INC-2013099898

PATIENT
  Age: 7 Year
  Sex: Male
  Weight: 22 kg

DRUGS (19)
  1. FLUCONAZOLE [Suspect]
     Indication: URINARY TRACT INFECTION
     Dosage: 60 MG EVERY24 HOURS
     Route: 042
     Dates: start: 20110425
  2. FLUCONAZOLE [Suspect]
     Dosage: 125 MG, EVERY 72 HOURS
     Route: 042
     Dates: start: 20110429, end: 20110516
  3. SANDIMMUN OPTORAL [Suspect]
     Indication: RENAL TRANSPLANT
     Dosage: 80-0-75
     Route: 048
     Dates: start: 20110413, end: 20110531
  4. CELLCEPT [Concomitant]
     Dosage: 500 MG, 2X/DAY
     Route: 048
     Dates: start: 20110412
  5. OMEPRAZOL [Concomitant]
     Dosage: 10 MG, 2X/DAY
     Route: 048
     Dates: start: 20110413
  6. SODIUM BICARBONATE [Concomitant]
     Dosage: 10 ML, 2X/DAY
     Dates: start: 20110512
  7. KEPINOL [Concomitant]
     Dosage: 40 MG, 2X/DAY
     Route: 048
     Dates: start: 20110413
  8. ACICLOVIR [Concomitant]
     Dosage: 200 MG, 2X/DAY
     Route: 048
     Dates: start: 20110520
  9. NEORECORMON 5000 [Concomitant]
     Dosage: 5000 IU, 2X/WEEK
     Route: 042
     Dates: start: 200801
  10. CEFUROXIM [Concomitant]
     Dosage: 500 MG, 3X/DAY
     Route: 042
     Dates: start: 20110413, end: 20110522
  11. DECORTIN [Concomitant]
     Dosage: 25 MG, DAILY
     Route: 048
     Dates: start: 20110413, end: 20110519
  12. DECORTIN [Concomitant]
     Dosage: 10 MG, 1X/DAY
     Route: 048
     Dates: start: 20110520
  13. DORMICUM FOR INJECTION [Concomitant]
     Dosage: 4 MG, 1X/DAY
     Route: 042
     Dates: start: 20110521, end: 20110521
  14. DORMICUM FOR INJECTION [Concomitant]
     Dosage: 2.5 MG, 2X/DAY
     Route: 042
     Dates: start: 20110522, end: 20110522
  15. KETANEST [Concomitant]
     Dosage: 15 MG, 1X/DAY
     Route: 042
     Dates: start: 20110521, end: 20110521
  16. KETANEST [Concomitant]
     Dosage: 25 MG, 2X/DAY
     Route: 042
     Dates: start: 20110522, end: 20110522
  17. METAMIZOLE [Concomitant]
     Dosage: 250 MG, 1X/DAY
     Route: 042
     Dates: start: 20110522, end: 20110522
  18. PERFALGAN [Concomitant]
     Dosage: 250 MG, 1X/DAY
     Route: 042
     Dates: start: 20110522, end: 20110522
  19. LASIX [Concomitant]
     Dosage: 20 MG, 1X/DAY
     Route: 042
     Dates: start: 20110521, end: 20110521

REACTIONS (2)
  - Encephalitis [Recovering/Resolving]
  - Disturbance in attention [Recovering/Resolving]
